FAERS Safety Report 11394648 (Version 1)
Quarter: 2015Q3

REPORT INFORMATION
  Report Type: Spontaneous
  Country: US (occurrence: None)
  Receive Date: 20150818
  Receipt Date: 20150818
  Transmission Date: 20151125
  Serious: No
  Sender: FDA-Public Use
  Company Number: US-2015CRT000374

PATIENT
  Age: 46 Year
  Sex: Female
  Weight: 75.3 kg

DRUGS (9)
  1. VITAMIN D [Concomitant]
     Active Substance: CHOLECALCIFEROL
  2. LEVOTHYROXINE. [Concomitant]
     Active Substance: LEVOTHYROXINE
  3. ASPIRIN. [Concomitant]
     Active Substance: ASPIRIN
  4. PLAVIX [Concomitant]
     Active Substance: CLOPIDOGREL BISULFATE
  5. SPIRONOLACTONE. [Suspect]
     Active Substance: SPIRONOLACTONE
     Indication: PRODUCT USED FOR UNKNOWN INDICATION
     Route: 048
     Dates: end: 20141130
  6. LISINOPRIL. [Concomitant]
     Active Substance: LISINOPRIL
  7. PROGESTERONE. [Concomitant]
     Active Substance: PROGESTERONE
  8. LIPITOR [Concomitant]
     Active Substance: ATORVASTATIN CALCIUM
  9. KORLYM [Suspect]
     Active Substance: MIFEPRISTONE
     Indication: CUSHING^S SYNDROME
     Route: 048
     Dates: start: 20130730, end: 20150414

REACTIONS (5)
  - Contusion [None]
  - Weight increased [None]
  - Pain [None]
  - Amenorrhoea [None]
  - Metrorrhagia [None]

NARRATIVE: CASE EVENT DATE: 201307
